FAERS Safety Report 25874180 (Version 1)
Quarter: 2025Q4

REPORT INFORMATION
  Report Type: Spontaneous
  Country: EU (occurrence: EU)
  Receive Date: 20251002
  Receipt Date: 20251002
  Transmission Date: 20260117
  Serious: Yes (Other)
  Sender: NOVARTIS
  Company Number: EU-002147023-NVSC2025LT151832

PATIENT
  Age: 73 Year
  Sex: Female

DRUGS (3)
  1. RIBOCICLIB [Suspect]
     Active Substance: RIBOCICLIB
     Indication: Metastases to breast
     Dosage: 600 MG, QD, EVERY 21 DAYS
     Route: 065
     Dates: start: 202410
  2. RIBOCICLIB [Suspect]
     Active Substance: RIBOCICLIB
     Dosage: 600 MG, QD, EVERY 21 DAYS
     Route: 065
  3. LETROZOLE [Suspect]
     Active Substance: LETROZOLE
     Indication: Metastases to breast
     Dosage: 1 DOSAGE FORM, QD
     Route: 065
     Dates: start: 202410

REACTIONS (1)
  - Haematotoxicity [Unknown]
